FAERS Safety Report 6256927-1 (Version None)
Quarter: 2009Q3

REPORT INFORMATION
  Report Type: 
  Country: None (occurrence: None)
  Receive Date: 20090706
  Receipt Date: 20090702
  Transmission Date: 20100115
  Serious: Yes (Death, Hospitalization, Other)
  Sender: FDA-Public Use
  Company Number: PHEH2007US14841

PATIENT
  Sex: Female

DRUGS (17)
  1. AREDIA [Suspect]
  2. ZOMETA [Suspect]
  3. CHEMOTHERAPEUTICS NOS [Concomitant]
  4. RADIATION THERAPY [Concomitant]
  5. COUMADIN [Concomitant]
     Dosage: 1 MG, UNK
  6. PRILOSEC [Concomitant]
     Dosage: 20 MG, QD
  7. PENICILLIN ^GRUNENTHAL^ [Concomitant]
     Dosage: 500 MG, QD
  8. CLINDAMYCIN [Concomitant]
     Dosage: 300 MG, TID
  9. MULTIVITAMIN ^LAPPE^ [Concomitant]
     Dosage: UNK
  10. CALCIUM [Concomitant]
  11. VITAMIN D [Concomitant]
  12. VITAMIN B-12 [Concomitant]
  13. ASCORBIC ACID [Concomitant]
  14. HYDROCHLOROTHIAZIDE [Concomitant]
  15. SIMVASTATIN [Concomitant]
     Dosage: 40 MG, QD
  16. PROCRIT                            /00909301/ [Concomitant]
  17. HERCEPTIN [Concomitant]

REACTIONS (33)
  - ANAEMIA [None]
  - AORTIC STENOSIS [None]
  - ARTERIOSCLEROSIS [None]
  - ASTHENIA [None]
  - BACK PAIN [None]
  - BRAIN NEOPLASM [None]
  - BREAST CANCER METASTATIC [None]
  - CAROTID BRUIT [None]
  - CHRONIC OBSTRUCTIVE PULMONARY DISEASE [None]
  - CHRONIC SINUSITIS [None]
  - DEFORMITY [None]
  - DEMENTIA [None]
  - DENTAL OPERATION [None]
  - DEPRESSION [None]
  - FALL [None]
  - GASTROINTESTINAL HAEMORRHAGE [None]
  - HAEMOPTYSIS [None]
  - INFECTION [None]
  - JOINT INJURY [None]
  - LEFT ATRIAL DILATATION [None]
  - METASTASES TO CENTRAL NERVOUS SYSTEM [None]
  - METASTASES TO LUNG [None]
  - MUCOSAL HAEMORRHAGE [None]
  - OSTEOARTHRITIS [None]
  - OSTEOMYELITIS CHRONIC [None]
  - OSTEONECROSIS [None]
  - PAIN [None]
  - PROCTALGIA [None]
  - SCOLIOSIS [None]
  - SWELLING [None]
  - TOOTH ABSCESS [None]
  - TOOTH EXTRACTION [None]
  - VENTRICULAR HYPERTROPHY [None]
